FAERS Safety Report 7433085-9 (Version None)
Quarter: 2011Q2

REPORT INFORMATION
  Report Type: 
  Country: None (occurrence: None)
  Receive Date: 20110422
  Receipt Date: 20110413
  Transmission Date: 20111010
  Serious: No
  Sender: FDA-Public Use
  Company Number: US-B.I. PHARMACEUTICALS,INC./RIDGEFIELD-2011-BP-03028BP

PATIENT
  Sex: Male

DRUGS (6)
  1. LANOXIN [Concomitant]
     Dosage: 0.25 MG
     Dates: start: 20081020
  2. PRADAXA [Suspect]
     Indication: ATRIAL FIBRILLATION
     Dosage: 300 MG
     Route: 048
     Dates: start: 20110106
  3. AVALIDE [Concomitant]
     Indication: HYPERTENSION
     Route: 048
     Dates: start: 20080905
  4. PREVACID [Concomitant]
     Dosage: 30 MG
     Dates: start: 20100201
  5. ADVAIR HFA [Concomitant]
     Dates: start: 20090601
  6. QUALQUIN [Concomitant]
     Dates: start: 20080915

REACTIONS (1)
  - BLOOD GLUCOSE INCREASED [None]
